FAERS Safety Report 22854148 (Version 2)
Quarter: 2024Q3

REPORT INFORMATION
  Report Type: Spontaneous
  Country: CA (occurrence: CA)
  Receive Date: 20230823
  Receipt Date: 20240801
  Transmission Date: 20241017
  Serious: Yes (Other)
  Sender: PFIZER
  Company Number: CA-PFIZER INC-PV202300142469

PATIENT
  Age: 45 Year
  Sex: Female
  Weight: 80.4 kg

DRUGS (3)
  1. IBRANCE [Suspect]
     Active Substance: PALBOCICLIB
     Indication: Breast cancer metastatic
     Dosage: 75 MG, CYCLIC (DAILY FOR 21 DAYS ON A 28 DAY CYCLE)
     Route: 048
     Dates: start: 20200930
  2. LETROZOLE [Concomitant]
     Active Substance: LETROZOLE
     Dosage: 2.5 MG
  3. ZOLEDRONIC ACID [Concomitant]
     Active Substance: ZOLEDRONIC ACID
     Dosage: UNK

REACTIONS (4)
  - Oophorectomy [Unknown]
  - Transaminases increased [Unknown]
  - Atelectasis [Unknown]
  - Hepatic steatosis [Unknown]
